FAERS Safety Report 9274750 (Version 1)
Quarter: 2013Q2

REPORT INFORMATION
  Report Type: Spontaneous
  Country: US (occurrence: None)
  Receive Date: 20130430
  Receipt Date: 20130430
  Transmission Date: 20140414
  Serious: Yes (Disabling, Other)
  Sender: FDA-Public Use
  Company Number: None

PATIENT
  Age: 72 Year
  Sex: Female
  Weight: 70.31 kg

DRUGS (1)
  1. PROLIA (DENOSUMAB) [Suspect]
     Indication: OSTEOPENIA
     Route: 058
     Dates: start: 20121106

REACTIONS (6)
  - Diarrhoea [None]
  - Pain [None]
  - Pain in jaw [None]
  - Insomnia [None]
  - Eating disorder [None]
  - Respiratory disorder [None]
